FAERS Safety Report 6986406-5 (Version None)
Quarter: 2010Q3

REPORT INFORMATION
  Report Type: 
  Country: None (occurrence: None)
  Receive Date: 20100910
  Receipt Date: 20100907
  Transmission Date: 20110219
  Serious: Yes (Life-Threatening, Hospitalization, Other)
  Sender: FDA-Public Use
  Company Number: 010198

PATIENT
  Sex: Female
  Weight: 55 kg

DRUGS (4)
  1. KEPPRA [Suspect]
     Indication: CONVULSION
     Dosage: (1500MG THERAPY ORAL)
     Route: 048
     Dates: start: 20100118, end: 20100401
  2. MARCUMAR [Suspect]
     Indication: ANTIPHOSPHOLIPID SYNDROME
     Dosage: (ACCORDING TO INR (AIMED AT VALUE OF 2-3) ORAL)
     Route: 048
     Dates: start: 20090601, end: 20100401
  3. LEVOTHYROXINE SODIUM [Concomitant]
  4. REMERGIL [Concomitant]

REACTIONS (22)
  - AUTOIMMUNE THYROIDITIS [None]
  - BLOOD PRESSURE SYSTOLIC INCREASED [None]
  - CEREBRAL INFARCTION [None]
  - COLLATERAL CIRCULATION [None]
  - CONVULSION [None]
  - DYSARTHRIA [None]
  - ELECTROCARDIOGRAM ST SEGMENT DEPRESSION [None]
  - GENERAL PHYSICAL HEALTH DETERIORATION [None]
  - GRAND MAL CONVULSION [None]
  - HAEMATOMA [None]
  - HEMIPARESIS [None]
  - HEPATIC CIRRHOSIS [None]
  - HEPATIC FAILURE [None]
  - HEPATOTOXICITY [None]
  - IRON DEFICIENCY ANAEMIA [None]
  - LYMPHADENOPATHY [None]
  - PLEURAL EFFUSION [None]
  - PNEUMOTHORAX [None]
  - PSYCHOTIC DISORDER [None]
  - REFLUX OESOPHAGITIS [None]
  - URINARY TRACT INFECTION [None]
  - VARICES OESOPHAGEAL [None]
